FAERS Safety Report 8059834-7 (Version None)
Quarter: 2012Q1

REPORT INFORMATION
  Report Type: 
  Country: None (occurrence: None)
  Receive Date: 20120120
  Receipt Date: 20120110
  Transmission Date: 20120608
  Serious: Yes (Hospitalization)
  Sender: FDA-Public Use
  Company Number: DE-BRISTOL-MYERS SQUIBB COMPANY-16352957

PATIENT
  Age: 63 Year
  Sex: Female
  Weight: 65 kg

DRUGS (2)
  1. CETUXIMAB [Suspect]
     Indication: COLORECTAL CANCER METASTATIC
     Dosage: RECENT DOSE:250MG/M2 ON 5JAN2012 INF:9TH
     Route: 042
     Dates: start: 20111010
  2. IRINOTECAN HCL [Suspect]
     Indication: COLORECTAL CANCER METASTATIC
     Dosage: RECENT DOSE:144MG/M2 ON 5JAN2012 INF:6TH
     Route: 042
     Dates: start: 20111010

REACTIONS (4)
  - GASTROINTESTINAL TOXICITY [None]
  - VOMITING [None]
  - NAUSEA [None]
  - DECREASED APPETITE [None]
